FAERS Safety Report 13824698 (Version 1)
Quarter: 2017Q3

REPORT INFORMATION
  Report Type: Spontaneous
  Country: US (occurrence: US)
  Receive Date: 20170801
  Receipt Date: 20170801
  Transmission Date: 20171127
  Serious: No
  Sender: FDA-Public Use
  Company Number: None

PATIENT
  Age: 34 Year
  Sex: Female
  Weight: 59.4 kg

DRUGS (6)
  1. SULFASALAZINE. [Concomitant]
     Active Substance: SULFASALAZINE
  2. HUMIRA [Concomitant]
     Active Substance: ADALIMUMAB
  3. METOPROLOL. [Concomitant]
     Active Substance: METOPROLOL
  4. BUPROPION XL 150MG TABLETS (24H) [Suspect]
     Active Substance: BUPROPION
     Indication: MAJOR DEPRESSION
     Dosage: QUANTITY:1 TABLET(S);OTHER FREQUENCY:1-2 TIMES;?
     Route: 048
     Dates: start: 20170717
  5. ALPRAZOLAM. [Concomitant]
     Active Substance: ALPRAZOLAM
  6. ZYRTEC [Concomitant]
     Active Substance: CETIRIZINE HYDROCHLORIDE

REACTIONS (4)
  - Product physical issue [None]
  - Nausea [None]
  - Product colour issue [None]
  - Headache [None]

NARRATIVE: CASE EVENT DATE: 20170726
